FAERS Safety Report 8886355 (Version 2)
Quarter: 2012Q4

REPORT INFORMATION
  Report Type: 
  Country: NL (occurrence: NL)
  Receive Date: 20121105
  Receipt Date: 20121116
  Transmission Date: 20130627
  Serious: Yes (Other)
  Sender: FDA-Public Use
  Company Number: NL-ROCHE-CID000000002215611

PATIENT

DRUGS (3)
  1. ALTEPLASE [Suspect]
     Indication: RETINAL HAEMORRHAGE
     Dosage: 20 mcg/0.1 mL
     Route: 065
  2. SULFUR HEXAFLUORIDE [Suspect]
     Indication: RETINAL HAEMORRHAGE
     Route: 065
  3. PERFLUOROPROPANE [Suspect]
     Indication: RETINAL HAEMORRHAGE
     Dosage: 10 %
     Route: 065

REACTIONS (3)
  - Vitreous haemorrhage [Unknown]
  - Retinal detachment [Unknown]
  - Retinopathy proliferative [Unknown]
